FAERS Safety Report 5217710-9 (Version None)
Quarter: 2006Q4

REPORT INFORMATION
  Report Type: 
  Country: None (occurrence: None)
  Receive Date: 20061130
  Receipt Date: 20060418
  Transmission Date: 20070319
  Serious: Yes (Hospitalization)
  Sender: FDA-Public Use
  Company Number: US200601002330

PATIENT
  Age: 32 Year
  Sex: Male
  Weight: 122.4 kg

DRUGS (2)
  1. ZYPREXA [Suspect]
     Indication: BIPOLAR DISORDER
     Dosage: ORAL
     Route: 048
     Dates: start: 20000627, end: 20050101
  2. DIVALPROEX SODIUM [Concomitant]

REACTIONS (2)
  - ABDOMINAL PAIN [None]
  - DIABETES MELLITUS [None]
